FAERS Safety Report 18071618 (Version 1)
Quarter: 2020Q3

REPORT INFORMATION
  Report Type: Spontaneous
  Country: US (occurrence: US)
  Receive Date: 20200725
  Receipt Date: 20200725
  Transmission Date: 20201103
  Serious: Yes (Hospitalization)
  Sender: FDA-Public Use
  Company Number: None

PATIENT
  Age: 29 Year
  Sex: Female
  Weight: 58.5 kg

DRUGS (5)
  1. LORYNA [Suspect]
     Active Substance: DROSPIRENONE\ETHINYL ESTRADIOL
     Indication: CONTRACEPTION
     Dosage: ?          QUANTITY:1 TABLET(S);?
     Route: 048
     Dates: start: 20151201, end: 20200718
  2. VIBERZI [Concomitant]
     Active Substance: ELUXADOLINE
  3. MULTIVITAMIN [Concomitant]
     Active Substance: VITAMINS
  4. WELLBUTRIN [Concomitant]
     Active Substance: BUPROPION HYDROCHLORIDE
  5. AZO BLADDER CONTROL [Concomitant]

REACTIONS (1)
  - Gallbladder obstruction [None]

NARRATIVE: CASE EVENT DATE: 20200718
